FAERS Safety Report 10214136 (Version 1)
Quarter: 2014Q2

REPORT INFORMATION
  Report Type: Spontaneous
  Country: FR (occurrence: FR)
  Receive Date: 20140603
  Receipt Date: 20140603
  Transmission Date: 20141212
  Serious: Yes (Hospitalization, Other)
  Sender: FDA-Public Use
  Company Number: FR-PFIZER INC-2014150268

PATIENT
  Age: 46 Year
  Sex: Male

DRUGS (2)
  1. ORELOX [Suspect]
     Dosage: UNK
     Route: 048
     Dates: start: 20140312, end: 20140313
  2. DOLIPRANE [Concomitant]
     Dosage: UNK

REACTIONS (11)
  - Dermatitis bullous [Recovered/Resolved]
  - Dermatitis exfoliative [Recovered/Resolved]
  - Purpura [Recovered/Resolved]
  - Cheilitis [Recovered/Resolved]
  - Pyrexia [Recovered/Resolved]
  - Oedema peripheral [Recovered/Resolved]
  - Cellulitis [Unknown]
  - Confusional state [Unknown]
  - Anxiety [Recovered/Resolved]
  - Agitation [Unknown]
  - Hallucination, visual [Unknown]
